FAERS Safety Report 8497837-9 (Version None)
Quarter: 2012Q3

REPORT INFORMATION
  Report Type: 
  Country: None (occurrence: None)
  Receive Date: 20120709
  Receipt Date: 20120613
  Transmission Date: 20120928
  Serious: No
  Sender: FDA-Public Use
  Company Number: US-AMGEN-USASP2012034878

PATIENT
  Age: 2 Year
  Sex: Female
  Weight: 13.6 kg

DRUGS (4)
  1. FOLIC ACID [Concomitant]
     Indication: JUVENILE ARTHRITIS
     Dosage: 10 MG, QD
     Route: 048
     Dates: start: 20110411
  2. METHOTREXATE [Concomitant]
     Indication: JUVENILE ARTHRITIS
     Dosage: 12.5 MG, QWK
     Route: 048
     Dates: start: 20110411
  3. ENBREL [Suspect]
     Indication: JUVENILE ARTHRITIS
     Dosage: 12.5 MG, 2 TIMES/WK
     Route: 058
     Dates: start: 20111030
  4. ORAPRED [Concomitant]
     Indication: JUVENILE ARTHRITIS
     Dosage: 15 MG, QD
     Route: 048
     Dates: start: 20100901, end: 20120430

REACTIONS (3)
  - MUSCULOSKELETAL STIFFNESS [None]
  - CRYING [None]
  - JUVENILE ARTHRITIS [None]
